FAERS Safety Report 9009224 (Version 5)
Quarter: 2013Q2

REPORT INFORMATION
  Report Type: Report from Study
  Country: JP (occurrence: JP)
  Receive Date: 20130111
  Receipt Date: 20130628
  Transmission Date: 20140414
  Serious: Yes (Hospitalization)
  Sender: FDA-Public Use
  Company Number: JP-009507513-1301JPN004020

PATIENT
  Age: 53 Year
  Sex: Female
  Weight: 45.2 kg

DRUGS (4)
  1. PLACEBO [Suspect]
     Indication: CHRONIC HEPATITIS C
     Dosage: UNK UNK, BID
     Dates: start: 20111007, end: 20120322
  2. PEGINTERFERON ALFA-2B [Suspect]
     Indication: CHRONIC HEPATITIS C
     Dosage: 80 MICROGRAM, QW
     Dates: start: 20111007, end: 20120831
  3. RIBAVIRIN [Suspect]
     Indication: CHRONIC HEPATITIS C
     Dosage: UNK
     Dates: start: 20111007, end: 20120906
  4. SELBEX [Concomitant]
     Indication: PROPHYLAXIS
     Dosage: UNK UNK, TID
     Route: 048
     Dates: start: 20111008

REACTIONS (1)
  - Endolymphatic hydrops [Recovering/Resolving]
